FAERS Safety Report 6086188-8 (Version None)
Quarter: 2009Q1

REPORT INFORMATION
  Report Type: 
  Country: None (occurrence: None)
  Receive Date: 20090217
  Receipt Date: 20090217
  Transmission Date: 20090719
  Serious: Yes (Hospitalization)
  Sender: FDA-Public Use
  Company Number: None

PATIENT
  Age: 5 Year
  Sex: Male
  Weight: 20 kg

DRUGS (1)
  1. BOTOX [Suspect]
     Indication: MUSCLE SPASTICITY
     Dosage: 200 UNITS 50 UNIT X 4 IM
     Route: 030
     Dates: start: 20081217, end: 20081217

REACTIONS (6)
  - APNOEA [None]
  - AREFLEXIA [None]
  - CONSTIPATION [None]
  - HEART RATE DECREASED [None]
  - TRACHEITIS [None]
  - VOCAL CORD DISORDER [None]
